FAERS Safety Report 7608757-3 (Version None)
Quarter: 2011Q3

REPORT INFORMATION
  Report Type: 
  Country: None (occurrence: None)
  Receive Date: 20110714
  Receipt Date: 20110714
  Transmission Date: 20111222
  Serious: Yes (Hospitalization, Other)
  Sender: FDA-Public Use
  Company Number: None

PATIENT
  Sex: Female

DRUGS (3)
  1. METHYLPHENIDATE HCL [Concomitant]
     Indication: NARCOLEPSY
     Dosage: 2 TABLETS
     Route: 048
     Dates: start: 20110628, end: 20110713
  2. METHYLPHENIDATE HYDROCHLORIDE [Suspect]
     Indication: NARCOLEPSY
     Dosage: 1 TABLETS
     Route: 048
     Dates: start: 20110613, end: 20110627
  3. BACTRIM [Interacting]

REACTIONS (10)
  - PERIPHERAL COLDNESS [None]
  - CATAPLEXY [None]
  - NERVOUS SYSTEM DISORDER [None]
  - MUSCULAR WEAKNESS [None]
  - VISUAL IMPAIRMENT [None]
  - MOVEMENT DISORDER [None]
  - HYPOAESTHESIA [None]
  - DYSARTHRIA [None]
  - SOMNOLENCE [None]
  - PARAESTHESIA [None]
